FAERS Safety Report 4785451-8 (Version None)
Quarter: 2005Q3

REPORT INFORMATION
  Report Type: 
  Country: None (occurrence: None)
  Receive Date: 20050929
  Receipt Date: 20050915
  Transmission Date: 20060218
  Serious: Yes (Hospitalization)
  Sender: FDA-Public Use
  Company Number: S05-FRA-03497-01

PATIENT
  Age: 67 Year
  Sex: Female

DRUGS (7)
  1. MEMANTINE HCL [Suspect]
     Dosage: 20 MG QD PO
     Route: 048
  2. PLAVIX [Suspect]
  3. LEVOTHYROXINE SODIUM [Suspect]
  4. HYDROCORTISONE [Suspect]
  5. FOSAMAX [Suspect]
     Dates: start: 20050426, end: 20050510
  6. AMLODIPINE BESYLATE [Suspect]
  7. OROCAL (CALCIUM CARBONATE) [Suspect]

REACTIONS (6)
  - JAW DISORDER [None]
  - OSTEOLYSIS [None]
  - OSTEONECROSIS [None]
  - PHARYNGOLARYNGEAL PAIN [None]
  - PURULENT DISCHARGE [None]
  - PYREXIA [None]
